FAERS Safety Report 19625087 (Version 1)
Quarter: 2021Q3

REPORT INFORMATION
  Report Type: Spontaneous
  Country: DE (occurrence: DE)
  Receive Date: 20210729
  Receipt Date: 20210729
  Transmission Date: 20211014
  Serious: Yes (Hospitalization)
  Sender: FDA-Public Use
  Company Number: NVSC2020DE340190

PATIENT
  Age: 54 Year
  Sex: Male
  Weight: 66 kg

DRUGS (15)
  1. MCP [Concomitant]
     Active Substance: METOCLOPRAMIDE HYDROCHLORIDE
     Indication: PRODUCT USED FOR UNKNOWN INDICATION
     Dosage: 10 MG, QD
     Route: 048
     Dates: start: 20201026
  2. ZOPICLON [Concomitant]
     Active Substance: ZOPICLONE
     Indication: PRODUCT USED FOR UNKNOWN INDICATION
     Dosage: UNK
     Route: 065
  3. PANTOPRAZOLE [Concomitant]
     Active Substance: PANTOPRAZOLE
     Indication: PRODUCT USED FOR UNKNOWN INDICATION
     Dosage: 40 MG,QD
     Route: 048
     Dates: start: 20201026
  4. ZOPICLON [Concomitant]
     Active Substance: ZOPICLONE
     Dosage: 7.5 MG, QD
     Route: 048
     Dates: start: 20201020
  5. BEVACIZUMAB. [Suspect]
     Active Substance: BEVACIZUMAB
     Indication: NON-SMALL CELL LUNG CANCER
     Dosage: 15 MG/KG (DATE LAST DOSE TAKEN PRIOR TO EVENT ON 08 FEB 2021)
     Route: 042
     Dates: start: 20201026
  6. DEXAMETHASONE. [Concomitant]
     Active Substance: DEXAMETHASONE
     Indication: PRODUCT USED FOR UNKNOWN INDICATION
     Dosage: 16 MG,QD
     Route: 048
     Dates: start: 20201026
  7. DEXAMETHASONE. [Concomitant]
     Active Substance: DEXAMETHASONE
     Dosage: 8 MG, QD
     Route: 048
     Dates: start: 20201027
  8. PACLITAXEL. [Suspect]
     Active Substance: PACLITAXEL
     Dosage: 350 MG/M2 (DATE LAST DOSE TAKEN PRIOR TO EVENT ON 08 FEB 2021)
     Route: 042
     Dates: start: 20201026
  9. IBUPROFEN. [Concomitant]
     Active Substance: IBUPROFEN
     Indication: PRODUCT USED FOR UNKNOWN INDICATION
     Dosage: 600 MG
     Route: 048
     Dates: start: 20201026
  10. ATEZOLIZUMAB. [Suspect]
     Active Substance: ATEZOLIZUMAB
     Indication: NON-SMALL CELL LUNG CANCER
     Dosage: 1200 MG (DATE LAST DOSE TAKEN PRIOR TO EVENT ON 08 FEB 2021)
     Route: 042
     Dates: start: 20201026
  11. PACLITAXEL. [Suspect]
     Active Substance: PACLITAXEL
     Indication: NON-SMALL CELL LUNG CANCER
     Dosage: UNK
     Route: 042
     Dates: start: 20201026
  12. CLEXANE [Concomitant]
     Active Substance: ENOXAPARIN SODIUM
     Indication: PRODUCT USED FOR UNKNOWN INDICATION
     Dosage: 40 MG,QD
     Route: 058
     Dates: start: 20201026
  13. SULBACTAM [Concomitant]
     Active Substance: SULBACTAM
     Indication: PRODUCT USED FOR UNKNOWN INDICATION
     Dosage: UNK, QD
     Route: 048
     Dates: start: 20210423, end: 202105
  14. XGEVA [Concomitant]
     Active Substance: DENOSUMAB
     Indication: METASTASES TO BONE
     Dosage: 120 MG (MONTH)
     Route: 058
     Dates: start: 20210301
  15. CARBOPLATIN. [Suspect]
     Active Substance: CARBOPLATIN
     Indication: NON-SMALL CELL LUNG CANCER
     Dosage: UNK (5 MG/MIN ML, DATE LAST DOSE TAKEN PRIOR TO EVENT ON 08 FEB 2021)
     Route: 042
     Dates: start: 20201026

REACTIONS (7)
  - Pain [Recovered/Resolved]
  - Infection [Recovered/Resolved]
  - Rash [Not Recovered/Not Resolved]
  - Abdominal pain upper [Recovered/Resolved]
  - Gastritis [Recovered/Resolved]
  - Back pain [Recovered/Resolved]
  - Bone pain [Recovered/Resolved]

NARRATIVE: CASE EVENT DATE: 20201028
